FAERS Safety Report 12978732 (Version 1)
Quarter: 2016Q4

REPORT INFORMATION
  Report Type: Report from Study
  Country: CN (occurrence: CN)
  Receive Date: 20161128
  Receipt Date: 20161128
  Transmission Date: 20170207
  Serious: Yes (Other)
  Sender: FDA-Public Use
  Company Number: PHHY2016CN159363

PATIENT
  Age: 35 Year
  Sex: Female

DRUGS (51)
  1. MYFORTIC [Suspect]
     Active Substance: MYCOPHENOLATE SODIUM
     Indication: RENAL TRANSPLANT
     Dosage: 720 MG, QD
     Route: 065
     Dates: start: 20160630, end: 20160630
  2. MYFORTIC [Suspect]
     Active Substance: MYCOPHENOLATE SODIUM
     Dosage: 720 MG, QD
     Route: 065
     Dates: start: 20160709
  3. CASPOFUNGIN [Concomitant]
     Active Substance: CASPOFUNGIN
     Indication: PROPHYLAXIS
     Dosage: 50 MG, QD
     Route: 042
     Dates: start: 20160701, end: 20160707
  4. CEFOPERAZONE [Concomitant]
     Active Substance: CEFOPERAZONE
     Indication: INFECTION PROPHYLAXIS
     Dosage: 2 G, Q12H
     Route: 042
     Dates: start: 20160704, end: 20160708
  5. DEXAMETHASONE. [Concomitant]
     Active Substance: DEXAMETHASONE
     Indication: PROPHYLAXIS
     Dosage: 10 MG, PRN
     Route: 042
     Dates: start: 20160630, end: 20160630
  6. HEPATITIS B IMMUNE GLOBULIN [Concomitant]
     Active Substance: HUMAN HEPATITIS B VIRUS IMMUNE GLOBULIN
     Indication: ANTIVIRAL PROPHYLAXIS
     Dosage: 400 U, PRN
     Route: 030
     Dates: start: 20160701, end: 20160701
  7. NIFEDIPINE. [Concomitant]
     Active Substance: NIFEDIPINE
     Indication: BLOOD PRESSURE INCREASED
     Dosage: 10 MG, PRN
     Route: 048
     Dates: start: 20160705, end: 20160705
  8. RHUBARB. [Concomitant]
     Active Substance: RHUBARB
     Indication: ANTACID THERAPY
     Dosage: 2 DF, TID
     Route: 048
     Dates: start: 20160705, end: 20160708
  9. SODIUM BICARBONATE. [Concomitant]
     Active Substance: SODIUM BICARBONATE
     Dosage: 1000 MG, BID
     Route: 048
     Dates: start: 20160708
  10. SODIUM PHOSPHATE [Concomitant]
     Active Substance: SODIUM PHOSPHATE
     Indication: GASTRIC LAVAGE
     Dosage: 133 ML, PRN
     Route: 065
     Dates: start: 20160630, end: 20160630
  11. METHYLPREDNISOLONE. [Suspect]
     Active Substance: METHYLPREDNISOLONE
     Dosage: 40 MG, QD
     Route: 065
     Dates: start: 20160704, end: 20160708
  12. RHUBARB. [Concomitant]
     Active Substance: RHUBARB
     Indication: GASTRITIS PROPHYLAXIS
  13. METHYLPREDNISOLONE. [Suspect]
     Active Substance: METHYLPREDNISOLONE
     Dosage: 660 MG, QD
     Route: 065
     Dates: start: 20160630, end: 20160630
  14. SODIUM BICARBONATE. [Concomitant]
     Active Substance: SODIUM BICARBONATE
     Indication: ELECTROLYTE IMBALANCE
     Dosage: 250 ML, QD
     Route: 065
     Dates: start: 20160630, end: 20160701
  15. CASPOFUNGIN [Concomitant]
     Active Substance: CASPOFUNGIN
     Indication: INFECTION PROPHYLAXIS
     Dosage: 50 MG, QD
     Route: 042
     Dates: start: 20160630, end: 20160701
  16. SULFAMETHOXAZOLE [Concomitant]
     Active Substance: SULFAMETHOXAZOLE
     Indication: INFECTION PROPHYLAXIS
     Dosage: 480 MG, BID
     Route: 048
     Dates: start: 20160704, end: 20160708
  17. DILTIAZEM HYDROCHLORIDE. [Concomitant]
     Active Substance: DILTIAZEM HYDROCHLORIDE
     Indication: DRUG LEVEL DECREASED
     Dosage: 30 MG, BID
     Route: 048
     Dates: start: 20160701
  18. TEICOPLANIN [Concomitant]
     Active Substance: TEICOPLANIN
     Indication: INFECTION PROPHYLAXIS
     Dosage: 200 MG, QD
     Route: 042
     Dates: start: 20160630, end: 20160701
  19. SODIUM CHLORIDE. [Concomitant]
     Active Substance: SODIUM CHLORIDE
     Indication: ELECTROLYTE IMBALANCE
     Dosage: 500 ML, PRN
     Route: 042
     Dates: start: 20160702, end: 20160702
  20. PREDNISONE. [Suspect]
     Active Substance: PREDNISONE
     Indication: PRODUCT USED FOR UNKNOWN INDICATION
     Dosage: 20 MG, QD
     Route: 065
     Dates: start: 20160708
  21. TACROLIMUS. [Suspect]
     Active Substance: TACROLIMUS
     Dosage: 4 MG, QD
     Route: 065
     Dates: start: 20160705, end: 20160706
  22. MANNITOL. [Concomitant]
     Active Substance: MANNITOL
     Indication: PROPHYLAXIS
     Dosage: 125 ML, PRN
     Route: 042
     Dates: start: 20160630, end: 20160630
  23. PROMETHAZINE [Concomitant]
     Active Substance: PROMETHAZINE\PROMETHAZINE HYDROCHLORIDE
     Indication: SEDATION
     Dosage: 2 DF (TAB), TID
     Route: 048
     Dates: start: 20160701, end: 20160708
  24. FUROSEMIDE. [Concomitant]
     Active Substance: FUROSEMIDE
     Indication: POLYURIA
     Dosage: 80 MG, PRN
     Route: 042
     Dates: start: 20160630, end: 20160630
  25. GANCICLOVIR. [Concomitant]
     Active Substance: GANCICLOVIR
     Indication: VIRAL INFECTION
     Dosage: 500 MG, TID
     Route: 048
     Dates: start: 20160708
  26. INSULIN [Concomitant]
     Active Substance: INSULIN NOS
     Indication: BLOOD GLUCOSE INCREASED
     Dosage: 12 IU, QD
     Route: 042
     Dates: start: 20160630, end: 20160701
  27. SODIUM BICARBONATE. [Concomitant]
     Active Substance: SODIUM BICARBONATE
     Indication: URINE ALKALINISATION THERAPY
     Dosage: 1000 MG, TID
     Route: 048
     Dates: start: 20160704, end: 20160708
  28. METHYLPREDNISOLONE. [Suspect]
     Active Substance: METHYLPREDNISOLONE
     Dosage: 240 MG, QD
     Route: 065
     Dates: start: 20160703, end: 20160703
  29. TACROLIMUS. [Suspect]
     Active Substance: TACROLIMUS
     Dosage: 3 MG, QD
     Route: 065
     Dates: start: 20160707
  30. AMIKACIN [Concomitant]
     Active Substance: AMIKACIN
     Indication: PROPHYLAXIS
     Dosage: 800 MG, PRN
     Route: 042
     Dates: start: 20160630, end: 20160630
  31. SODIUM CHLORIDE. [Concomitant]
     Active Substance: SODIUM CHLORIDE
     Indication: ELECTROLYTE IMBALANCE
     Dosage: 500 ML, PRN
     Route: 042
     Dates: start: 20160630, end: 20160630
  32. SULFAMETHOXAZOLE [Concomitant]
     Active Substance: SULFAMETHOXAZOLE
     Dosage: 480 MG, QD
     Route: 048
     Dates: start: 20160708
  33. GANCICLOVIR. [Concomitant]
     Active Substance: GANCICLOVIR
     Indication: VIRAL INFECTION
     Dosage: 450 MG, QD
     Route: 042
     Dates: start: 20160704, end: 20160708
  34. HEPARIN [Concomitant]
     Active Substance: HEPARIN SODIUM
     Indication: ANTICOAGULANT THERAPY
     Dosage: 12500 IU, W2D3
     Route: 042
     Dates: start: 20160702, end: 20160708
  35. IMIPENEM AND CILASTATIN [Concomitant]
     Active Substance: CILASTATIN SODIUM\IMIPENEM
     Indication: INFECTION PROPHYLAXIS
     Dosage: 1 G, PRN
     Route: 042
     Dates: start: 20160630, end: 20160630
  36. TEICOPLANIN [Concomitant]
     Active Substance: TEICOPLANIN
     Dosage: 200 MG, QD
     Route: 042
     Dates: start: 20160701, end: 20160707
  37. SIMULECT [Suspect]
     Active Substance: BASILIXIMAB
     Indication: PRODUCT USED FOR UNKNOWN INDICATION
     Dosage: 20 MG, QD
     Route: 065
     Dates: start: 20160630, end: 20160630
  38. SIMULECT [Suspect]
     Active Substance: BASILIXIMAB
     Dosage: 20 MG, QD
     Route: 065
     Dates: start: 20160704, end: 20160704
  39. METHYLPREDNISOLONE. [Suspect]
     Active Substance: METHYLPREDNISOLONE
     Indication: PRODUCT USED FOR UNKNOWN INDICATION
     Dosage: 500 MG, QD
     Route: 065
     Dates: start: 20160701, end: 20160702
  40. TACROLIMUS. [Suspect]
     Active Substance: TACROLIMUS
     Indication: PRODUCT USED FOR UNKNOWN INDICATION
     Dosage: 6 MG, QD
     Route: 065
     Dates: start: 20160701, end: 20160704
  41. ALPRAZOLAM DOC [Concomitant]
     Indication: SEDATION
     Dosage: 0.4 MG, QN
     Route: 048
     Dates: start: 20160701, end: 20160708
  42. ALUMINIUM HYDROXIDE-MAGNESIUM CARBONATE GEL [Concomitant]
     Indication: ANTACID THERAPY
     Dosage: 1000 MG, QD
     Route: 048
     Dates: start: 20160701
  43. FUROSEMIDE. [Concomitant]
     Active Substance: FUROSEMIDE
     Dosage: 20 MG, QD
     Route: 042
     Dates: start: 20160704, end: 20160708
  44. IMIPENEM AND CILASTATIN [Concomitant]
     Active Substance: CILASTATIN SODIUM\IMIPENEM
     Dosage: 500 MG, Q8H
     Route: 042
     Dates: start: 20160701, end: 20160707
  45. MYFORTIC [Suspect]
     Active Substance: MYCOPHENOLATE SODIUM
     Dosage: 2160 MG, QD
     Route: 065
     Dates: start: 20160701, end: 20160708
  46. POTASSIUM CHLORIDE. [Concomitant]
     Active Substance: POTASSIUM CHLORIDE
     Indication: ELECTROLYTE IMBALANCE
     Dosage: 12 ML, QD
     Route: 042
     Dates: start: 20160630, end: 20160701
  47. ALPROSTADIL. [Concomitant]
     Active Substance: ALPROSTADIL
     Indication: CARDIOVASCULAR DISORDER
     Dosage: 20 UG, QD
     Route: 042
     Dates: start: 20160701, end: 20160708
  48. ALUMINIUM HYDROXIDE-MAGNESIUM CARBONATE GEL [Concomitant]
     Indication: PROPHYLAXIS
  49. SODIUM CHLORIDE. [Concomitant]
     Active Substance: SODIUM CHLORIDE
     Dosage: 1000 ML, PRN
     Route: 042
     Dates: start: 20160702, end: 20160702
  50. DIAZEPAM. [Concomitant]
     Active Substance: DIAZEPAM
     Indication: SEDATION
     Dosage: 5 MG, QD
     Route: 048
     Dates: start: 20160630, end: 20160701
  51. OMEPRAZOLE. [Concomitant]
     Active Substance: OMEPRAZOLE
     Indication: GASTRITIS PROPHYLAXIS
     Dosage: 40 MG, QD
     Route: 042
     Dates: start: 20160701, end: 20160708

REACTIONS (15)
  - High density lipoprotein increased [Unknown]
  - Procedural pain [Recovering/Resolving]
  - Alanine aminotransferase increased [Unknown]
  - Blood glucose decreased [Unknown]
  - Neutrophil count increased [Unknown]
  - Blood albumin decreased [Unknown]
  - Blood creatinine decreased [Unknown]
  - White blood cell count increased [Unknown]
  - C-reactive protein decreased [Unknown]
  - Sleep disorder [Recovering/Resolving]
  - Red blood cells urine positive [Unknown]
  - Blood urea increased [Unknown]
  - Incision site pain [Recovering/Resolving]
  - Lymphocyte count decreased [Unknown]
  - Proteinuria [Unknown]

NARRATIVE: CASE EVENT DATE: 20160701
